FAERS Safety Report 4914897-X (Version None)
Quarter: 2006Q1

REPORT INFORMATION
  Report Type: 
  Country: None (occurrence: None)
  Receive Date: 20060217
  Receipt Date: 19990811
  Transmission Date: 20060701
  Serious: Yes (Other)
  Sender: FDA-Public Use
  Company Number: US-BOEHRINGER INGELHEIM PHARMACEUTICALS, INC.-1999-BP-00995

PATIENT
  Age: 10 Year
  Sex: Female
  Weight: 36.4 kg

DRUGS (5)
  1. VIRAMUNE [Suspect]
     Indication: HIV INFECTION
     Route: 048
     Dates: start: 19990617
  2. RITONAVIR [Suspect]
     Indication: HIV INFECTION
     Route: 048
     Dates: start: 19990617
  3. AZT [Suspect]
     Indication: HIV INFECTION
     Route: 048
     Dates: start: 19990617
  4. VIDEX [Suspect]
     Indication: HIV INFECTION
     Route: 048
     Dates: start: 19990617
  5. SEPTRA DS [Concomitant]

REACTIONS (2)
  - ALOPECIA [None]
  - NEUTROPENIA [None]
